FAERS Safety Report 9391020 (Version 1)
Quarter: 2013Q3

REPORT INFORMATION
  Report Type: Spontaneous
  Country: DK (occurrence: GB)
  Receive Date: 20130709
  Receipt Date: 20130709
  Transmission Date: 20140515
  Serious: Yes (Other)
  Sender: FDA-Public Use
  Company Number: GB-FRI-1000046463

PATIENT
  Age: 81 Year
  Sex: Female
  Weight: 67 kg

DRUGS (5)
  1. CITALOPRAM [Suspect]
     Route: 048
     Dates: start: 20130610
  2. AMLODIPINE [Concomitant]
     Dates: start: 20130219
  3. FLUPENTIXOL [Concomitant]
     Dates: start: 20130219
  4. TRAZODONE [Concomitant]
     Dates: start: 20130614
  5. ZOPICLONE [Concomitant]
     Dates: start: 20130610

REACTIONS (3)
  - Gait disturbance [Recovered/Resolved]
  - Feeling hot [Recovered/Resolved]
  - Dry mouth [Recovered/Resolved]
